FAERS Safety Report 9845426 (Version 1)
Quarter: 2014Q1

REPORT INFORMATION
  Report Type: Report from Study
  Country: US (occurrence: US)
  Receive Date: 20140127
  Receipt Date: 20140127
  Transmission Date: 20141002
  Serious: Yes (Hospitalization)
  Sender: FDA-Public Use
  Company Number: US-PURDUE-USA-2014-0110519

PATIENT
  Sex: Female

DRUGS (1)
  1. OXY CR TAB [Suspect]
     Indication: BACK PAIN
     Dosage: 240 MG, TID
     Route: 048
     Dates: start: 20131120

REACTIONS (1)
  - Metastatic neoplasm [Not Recovered/Not Resolved]
